FAERS Safety Report 11129399 (Version 2)
Quarter: 2015Q2

REPORT INFORMATION
  Report Type: Spontaneous
  Country: US (occurrence: US)
  Receive Date: 20150521
  Receipt Date: 20150526
  Transmission Date: 20150821
  Serious: Yes (Other)
  Sender: FDA-Public Use
  Company Number: US-PFIZER INC-2015169460

PATIENT
  Age: 67 Year
  Sex: Female
  Weight: 78 kg

DRUGS (7)
  1. EFFEXOR XR [Concomitant]
     Active Substance: VENLAFAXINE HYDROCHLORIDE
     Dosage: UNK
  2. ATIVAN [Concomitant]
     Active Substance: LORAZEPAM
     Dosage: UNK
  3. RISPERIDONE. [Concomitant]
     Active Substance: RISPERIDONE
     Dosage: UNK
  4. PEPCID AC [Concomitant]
     Active Substance: FAMOTIDINE
     Dosage: UNK
  5. CHANTIX [Suspect]
     Active Substance: VARENICLINE TARTRATE
     Indication: SMOKING CESSATION THERAPY
     Dosage: 0.5 MG, 1X/DAY (IN MORNING)
     Route: 048
     Dates: start: 20150514
  6. ASPIRIN. [Concomitant]
     Active Substance: ASPIRIN
     Dosage: 81 MG, UNK
  7. WELLBUTRIN [Concomitant]
     Active Substance: BUPROPION HYDROCHLORIDE
     Dosage: UNK

REACTIONS (12)
  - Hyperaesthesia [Unknown]
  - Blister [Not Recovered/Not Resolved]
  - Feeling hot [Not Recovered/Not Resolved]
  - Skin discolouration [Unknown]
  - Dry mouth [Unknown]
  - Thirst [Unknown]
  - Heart rate increased [Not Recovered/Not Resolved]
  - Dizziness [Unknown]
  - Blood sodium decreased [Unknown]
  - Dyspnoea [Unknown]
  - Malaise [Unknown]
  - Peripheral swelling [Not Recovered/Not Resolved]

NARRATIVE: CASE EVENT DATE: 201505
